FAERS Safety Report 15582711 (Version 1)
Quarter: 2018Q4

REPORT INFORMATION
  Report Type: Spontaneous
  Country: US (occurrence: US)
  Receive Date: 20181105
  Receipt Date: 20181105
  Transmission Date: 20190205
  Serious: Yes (Other)
  Sender: FDA-Public Use
  Company Number: US-ADAAP-201800184

PATIENT
  Sex: Male

DRUGS (1)
  1. NETSPOT [Suspect]
     Active Substance: DOTATATE GALLIUM GA-68
     Indication: POSITRON EMISSION TOMOGRAM
     Route: 065

REACTIONS (3)
  - Pain in extremity [Unknown]
  - Muscle tightness [Unknown]
  - Chest discomfort [Unknown]
